FAERS Safety Report 9729843 (Version 3)
Quarter: 2013Q4

REPORT INFORMATION
  Report Type: Spontaneous
  Country: US (occurrence: US)
  Receive Date: 20131204
  Receipt Date: 20131230
  Transmission Date: 20140711
  Serious: Yes (Life-Threatening, Hospitalization, Disabling, Other)
  Sender: FDA-Public Use
  Company Number: US201007002555

PATIENT
  Age: 47 Year
  Sex: Male
  Weight: 86.17 kg

DRUGS (23)
  1. BYETTA PEN DISPOSABLE [Suspect]
     Indication: DIABETES MELLITUS
     Route: 058
     Dates: start: 2006, end: 200707
  2. LANTUS [Concomitant]
     Indication: DIABETES MELLITUS
  3. LEVEMIR [Concomitant]
     Dates: end: 200707
  4. GLUCOTROL XL [Concomitant]
     Dates: end: 200707
  5. GLUCOPHAGE [Concomitant]
     Dates: end: 200707
  6. PEPCID [Concomitant]
  7. ZOCOR [Concomitant]
     Indication: HYPERLIPIDAEMIA
     Dates: end: 200707
  8. LOPRESSOR [Concomitant]
     Indication: HYPERTENSION
     Route: 048
  9. LOPRESSOR [Concomitant]
     Indication: HYPERTENSION
     Dates: start: 20070720
  10. LOPRESSOR [Concomitant]
     Indication: HYPERTENSION
     Route: 048
  11. PLAVIX [Concomitant]
     Dates: end: 200707
  12. LISINOPRIL [Concomitant]
  13. ASPIRIN [Concomitant]
     Dosage: 81 MG ONCE A DAY
     Route: 054
     Dates: start: 200707
  14. DILAUDID [Concomitant]
     Indication: PAIN
     Route: 042
  15. NITROGLYCERIN [Concomitant]
     Route: 060
  16. NORMAL SALINE [Concomitant]
  17. PRIMAXIN [Concomitant]
     Indication: KLEBSIELLA INFECTION
     Route: 042
  18. DOPAMINE [Concomitant]
     Dates: start: 200707
  19. HEPARIN [Concomitant]
  20. UNASYN [Concomitant]
     Route: 042
     Dates: start: 200707
  21. INSULIN [Concomitant]
     Route: 042
     Dates: start: 200707, end: 20070719
  22. NOVOLOG [Concomitant]
  23. METOPROLOL [Concomitant]

REACTIONS (18)
  - Respiratory failure [Recovered/Resolved]
  - Septic shock [Recovered/Resolved]
  - Systemic inflammatory response syndrome [Unknown]
  - Acute respiratory distress syndrome [Recovered/Resolved]
  - Pancreatitis necrotising [Unknown]
  - Pancreatitis chronic [Unknown]
  - Renal failure acute [Recovering/Resolving]
  - Renal tubular necrosis [Recovered/Resolved]
  - Supraventricular tachycardia [Recovered/Resolved]
  - Troponin increased [Recovering/Resolving]
  - Pancreatic abscess [Unknown]
  - Pancreatic fistula [Unknown]
  - Ascites [Unknown]
  - Amnesia [Unknown]
  - Joint stiffness [Unknown]
  - Arthralgia [Unknown]
  - Off label use [Recovered/Resolved]
  - Disturbance in attention [Unknown]
